FAERS Safety Report 15990897 (Version 2)
Quarter: 2019Q1

REPORT INFORMATION
  Report Type: Spontaneous
  Country: BY (occurrence: US)
  Receive Date: 20190221
  Receipt Date: 20190222
  Transmission Date: 20190418
  Serious: Yes (Other)
  Sender: FDA-Public Use
  Company Number: BY-009507513-1902BLR005586

PATIENT
  Age: 59 Year
  Sex: Female
  Weight: 42.5 kg

DRUGS (23)
  1. OMEPRAZOLE. [Concomitant]
     Active Substance: OMEPRAZOLE
     Dosage: UNK
     Dates: start: 20180904
  2. HYDROCHLOROTHIAZIDE. [Concomitant]
     Active Substance: HYDROCHLOROTHIAZIDE
     Dosage: UNK
     Dates: start: 20180904, end: 20180924
  3. METOCLOPRAMIDE. [Concomitant]
     Active Substance: METOCLOPRAMIDE
     Dosage: UNK
     Dates: start: 20180824
  4. PRIMAXIN IV [Suspect]
     Active Substance: CILASTATIN SODIUM\IMIPENEM
     Indication: TUBERCULOSIS
     Dosage: 2000 (UNITS NOT PROVIDED), QD
     Route: 042
     Dates: start: 20180801
  5. INSULIN [Concomitant]
     Active Substance: INSULIN NOS
  6. PROTIONAMIDE [Suspect]
     Active Substance: PROTIONAMIDE
     Indication: TUBERCULOSIS
     Dosage: UNK, QD
     Route: 048
     Dates: start: 20180801
  7. AMBROXOL [Concomitant]
     Active Substance: AMBROXOL
     Dosage: UNK
     Dates: start: 20180801
  8. FTC [Concomitant]
     Active Substance: EMTRICITABINE
     Dosage: UNK
     Dates: end: 20081123
  9. AMOXICILLIN (+) CLAVULANATE POTASSIUM [Suspect]
     Active Substance: AMOXICILLIN\CLAVULANATE POTASSIUM
     Indication: TUBERCULOSIS
     Dosage: UNK, QD
     Route: 048
     Dates: start: 20180801
  10. DOLUTEGRAVIR [Concomitant]
     Active Substance: DOLUTEGRAVIR
  11. CLOFAZIMINE [Suspect]
     Active Substance: CLOFAZIMINE
     Indication: TUBERCULOSIS
     Dosage: 100 (UNITS NOT PROVIDED), QD
     Route: 048
     Dates: start: 20180801
  12. LINEZOLID. [Suspect]
     Active Substance: LINEZOLID
     Indication: TUBERCULOSIS
     Dosage: UNK, QD
     Route: 048
     Dates: start: 20180801
  13. EFAVIRENZ. [Concomitant]
     Active Substance: EFAVIRENZ
     Dosage: UNK
     Dates: start: 20180830, end: 20181123
  14. TENOFOVIR DISOPROXIL FUMARATE. [Concomitant]
     Active Substance: TENOFOVIR DISOPROXIL FUMARATE
     Dosage: UNK
     Dates: end: 20181123
  15. TRIMOXAZOLE [Concomitant]
     Dosage: UNK
     Dates: start: 20180801
  16. LORATADINE. [Concomitant]
     Active Substance: LORATADINE
     Dosage: UNK
     Dates: start: 20180907
  17. PYRIDOXINE [Concomitant]
     Active Substance: PYRIDOXINE
     Dosage: UNK
     Dates: start: 20180914
  18. DEXTROSE. [Concomitant]
     Active Substance: DEXTROSE
     Dosage: UNK
     Dates: start: 20180919, end: 20180928
  19. LAMIVUDINE. [Concomitant]
     Active Substance: LAMIVUDINE
  20. DELAMANID [Suspect]
     Active Substance: DELAMANID
     Indication: TUBERCULOSIS
     Dosage: 200 (UNITS NOT PROVIDED), QD
     Route: 048
     Dates: start: 20180801
  21. MOXIFLOXACIN. [Suspect]
     Active Substance: MOXIFLOXACIN
     Indication: TUBERCULOSIS
     Dosage: UNK, QD
     Route: 048
     Dates: start: 20180801
  22. EMTRICITABINE (+) TENOFOVIR DISOPROXIL FUMARATE [Concomitant]
     Active Substance: EMTRICITABINE\TENOFOVIR DISOPROXIL
     Dosage: UNK
     Dates: start: 20180830, end: 20181123
  23. ZIDOVUDINE. [Concomitant]
     Active Substance: ZIDOVUDINE

REACTIONS (1)
  - Hepatic enzyme increased [Recovered/Resolved]

NARRATIVE: CASE EVENT DATE: 20181001
